FAERS Safety Report 15920617 (Version 1)
Quarter: 2019Q1

REPORT INFORMATION
  Report Type: Spontaneous
  Country: ZA (occurrence: ZA)
  Receive Date: 20190205
  Receipt Date: 20190205
  Transmission Date: 20190417
  Serious: Yes (Hospitalization)
  Sender: FDA-Public Use
  Company Number: PHHY2019ZA025074

PATIENT
  Age: 61 Year
  Sex: Female

DRUGS (1)
  1. ESTRADOT [Suspect]
     Active Substance: ESTRADIOL
     Indication: HORMONE REPLACEMENT THERAPY
     Dosage: 100 UG, UNK
     Route: 048
     Dates: start: 201808

REACTIONS (2)
  - Ligament disorder [Unknown]
  - Incorrect route of product administration [Unknown]
